FAERS Safety Report 8619004 (Version 3)
Quarter: 2012Q4

REPORT INFORMATION
  Report Type: 
  Country: BR (occurrence: BR)
  Receive Date: 20120618
  Receipt Date: 20120830
  Transmission Date: 20130627
  Serious: Yes (Other)
  Sender: FDA-Public Use
  Company Number: PHHY2012BR051326

PATIENT
  Age: 92 Year
  Sex: Female

DRUGS (4)
  1. TEGRETOL [Suspect]
     Indication: TRIGEMINAL NEURALGIA
     Dosage: 1 DF, daily
     Route: 048
     Dates: start: 1985
  2. TEGRETOL CR [Suspect]
     Indication: TRIGEMINAL NEURALGIA
     Dosage: 1 DF, daily
     Route: 048
     Dates: end: 2007
  3. TEGRETOL CR [Suspect]
     Dosage: 3 DF, daily
     Route: 048
  4. TEGRETOL [Suspect]
     Indication: PAIN
     Dosage: 10 ml, daily
     Route: 048
     Dates: start: 201206, end: 201208

REACTIONS (8)
  - Dementia Alzheimer^s type [Not Recovered/Not Resolved]
  - Schizophrenia [Unknown]
  - Oesophagitis [Unknown]
  - Gastritis [Unknown]
  - Barrett^s oesophagus [Unknown]
  - Cough [Unknown]
  - Trigeminal neuralgia [Not Recovered/Not Resolved]
  - Ageusia [Not Recovered/Not Resolved]
